FAERS Safety Report 9107170 (Version 2)
Quarter: 2013Q1

REPORT INFORMATION
  Report Type: Report from Study
  Country: US (occurrence: US)
  Receive Date: 20130221
  Receipt Date: 20130227
  Transmission Date: 20140127
  Serious: Yes (Hospitalization)
  Sender: FDA-Public Use
  Company Number: PHHO2013US002807

PATIENT
  Age: 60 Year
  Sex: Female

DRUGS (6)
  1. COMPARATOR PACLITAXEL [Suspect]
     Indication: SQUAMOUS CELL CARCINOMA
     Dosage: 180 MG, UNK
     Route: 042
     Dates: start: 20130211
  2. FLUOROURACIL [Suspect]
     Indication: SQUAMOUS CELL CARCINOMA
     Dosage: 1050 MG, UNK
     Route: 042
     Dates: start: 20130210, end: 20130215
  3. BLINDED AFINITOR [Suspect]
     Indication: SQUAMOUS CELL CARCINOMA
     Dosage: UNK, NO TREATMENT
  4. BLINDED NO TREATMENT RECEIVED [Suspect]
     Indication: SQUAMOUS CELL CARCINOMA
     Dosage: UNK, NO TREATMENT
  5. BLINDED PLACEBO [Suspect]
     Indication: SQUAMOUS CELL CARCINOMA
     Dosage: UNK, NO TREATMENT
  6. HYDROXYUREA [Suspect]
     Indication: SQUAMOUS CELL CARCINOMA
     Dosage: 500 MG, UNK
     Route: 048
     Dates: start: 20130211, end: 20130215

REACTIONS (1)
  - Pyrexia [Unknown]
